FAERS Safety Report 10111457 (Version 1)
Quarter: 2014Q2

REPORT INFORMATION
  Report Type: Spontaneous
  Country: US (occurrence: None)
  Receive Date: 20140421
  Receipt Date: 20140421
  Transmission Date: 20141212
  Serious: Yes (Other)
  Sender: FDA-Public Use
  Company Number: AEGR000329

PATIENT
  Age: 36 Year
  Sex: Male
  Weight: 106.1 kg

DRUGS (7)
  1. JUXTAPID (LOMITAPIDE) CAPSULE, 5MG [Suspect]
     Indication: TYPE IIA HYPERLIPIDAEMIA
     Route: 048
     Dates: start: 20130901, end: 201310
  2. CRESTOR (ROSUVASTATIN CALCIUM) [Concomitant]
  3. ZETIA (EZETIMIBE) [Concomitant]
  4. EFFIENT (PRASUGREL HYDROCHLORIDE) [Concomitant]
  5. METOPROLOL (METOPROLOL) [Concomitant]
  6. LISINOPRIL (LISINOPRIL) [Concomitant]
  7. ASA (ACETYASLICYLIC ACID) [Concomitant]

REACTIONS (1)
  - Diarrhoea [None]
